FAERS Safety Report 14430879 (Version 2)
Quarter: 2018Q1

REPORT INFORMATION
  Report Type: Report from Study
  Country: DE (occurrence: DE)
  Receive Date: 20180124
  Receipt Date: 20180323
  Transmission Date: 20180509
  Serious: Yes (Hospitalization)
  Sender: FDA-Public Use
  Company Number: DE-ROCHE-2058713

PATIENT
  Age: 39 Year
  Sex: Male
  Weight: 99.7 kg

DRUGS (9)
  1. INSTANYL [Concomitant]
     Active Substance: FENTANYL
     Dosage: TOTAL DAILY DOSE: UNKNOWN
     Route: 048
     Dates: start: 20180115
  2. NADROPARINE [Concomitant]
     Active Substance: NADROPARIN
     Dosage: TOTAL DAILY DOSE: UNKNOWN
     Route: 058
     Dates: start: 20180115, end: 20180116
  3. CODEINE PHOSPHATE [Concomitant]
     Active Substance: CODEINE PHOSPHATE
     Route: 048
     Dates: start: 20180115, end: 20180118
  4. LIDOCAINE. [Concomitant]
     Active Substance: LIDOCAINE
     Route: 050
     Dates: start: 20171229, end: 20180118
  5. PARACETAMOL [Concomitant]
     Active Substance: ACETAMINOPHEN
     Route: 048
     Dates: start: 20180115, end: 20180118
  6. FILGRASTIM [Concomitant]
     Active Substance: FILGRASTIM
     Route: 058
     Dates: start: 20180116
  7. FILGRASTIM [Concomitant]
     Active Substance: FILGRASTIM
     Route: 058
     Dates: start: 20180102, end: 20180115
  8. OBINUTUZUMAB. [Suspect]
     Active Substance: OBINUTUZUMAB
     Indication: CHRONIC LYMPHOCYTIC LEUKAEMIA
     Dosage: NO OF CYCLE: 04?DATE OF LAST DOSE OF A PRIOR TO SERIOUS ADVERSE EVENT (SAE): 29/DEC/2017
     Route: 065
     Dates: start: 20170926
  9. VENETOCLAX. [Suspect]
     Active Substance: VENETOCLAX
     Indication: CHRONIC LYMPHOCYTIC LEUKAEMIA
     Dosage: DATE OF LAST DOSE OF A PRIOR TO SERIOUS ADVERSE EVENT (SAE): 15/JAN/2018
     Route: 065
     Dates: start: 20171017

REACTIONS (1)
  - Respiratory tract infection [Recovered/Resolved]

NARRATIVE: CASE EVENT DATE: 20180115
